FAERS Safety Report 7691261-4 (Version None)
Quarter: 2011Q3

REPORT INFORMATION
  Report Type: 
  Country: None (occurrence: None)
  Receive Date: 20110818
  Receipt Date: 20110809
  Transmission Date: 20111222
  Serious: Yes (Life-Threatening, Hospitalization)
  Sender: FDA-Public Use
  Company Number: JP-ASTRAZENECA-2011SE38583

PATIENT
  Age: 70 Year
  Sex: Male
  Weight: 69 kg

DRUGS (10)
  1. NATEGLINIDE [Concomitant]
     Route: 048
     Dates: start: 20080401
  2. FERROUS CITRATE [Concomitant]
     Route: 048
     Dates: start: 20080401
  3. CANDESARTAN CILEXETIL [Suspect]
     Indication: CARDIAC FAILURE CHRONIC
     Route: 048
     Dates: start: 20080701, end: 20080702
  4. GLYCORAN [Concomitant]
     Route: 048
     Dates: start: 20080401
  5. LIPITOR [Concomitant]
     Route: 048
     Dates: start: 20080401
  6. ALDACTONE [Concomitant]
     Route: 048
     Dates: start: 20080401
  7. CARVEDILOL [Concomitant]
     Route: 048
     Dates: start: 20080401
  8. PLAVIX [Concomitant]
     Route: 048
     Dates: start: 20080401
  9. ASPIRIN [Concomitant]
     Route: 048
     Dates: start: 20080401
  10. LASIX [Concomitant]
     Route: 048
     Dates: start: 20080401

REACTIONS (3)
  - SICK SINUS SYNDROME [None]
  - RENAL FAILURE ACUTE [None]
  - SHOCK [None]
